FAERS Safety Report 9160070 (Version 2)
Quarter: 2013Q2

REPORT INFORMATION
  Report Type: Spontaneous
  Country: FR (occurrence: FR)
  Receive Date: 20130313
  Receipt Date: 20130409
  Transmission Date: 20140414
  Serious: Yes (Hospitalization)
  Sender: FDA-Public Use
  Company Number: FR-PFIZER INC-2013083953

PATIENT
  Age: 45 Year
  Sex: Male

DRUGS (3)
  1. CORDARONE [Suspect]
     Indication: ARRHYTHMIA
     Dosage: 1200 MG, ONCE DAILY
     Route: 048
     Dates: start: 20130228, end: 20130303
  2. PRADAXA [Concomitant]
     Dosage: UNK
  3. FLECAINE [Concomitant]
     Dosage: UNK

REACTIONS (2)
  - Dysphemia [Recovered/Resolved]
  - Rhabdomyolysis [Recovered/Resolved]
